FAERS Safety Report 18262800 (Version 1)
Quarter: 2020Q3

REPORT INFORMATION
  Report Type: Spontaneous
  Country: US (occurrence: US)
  Receive Date: 20200914
  Receipt Date: 20200914
  Transmission Date: 20201103
  Serious: No
  Sender: FDA-Public Use
  Company Number: None

PATIENT
  Age: 78 Year
  Weight: 101.2 kg

DRUGS (2)
  1. XARELTO [Suspect]
     Active Substance: RIVAROXABAN
  2. ASPIRIN 81MG [Suspect]
     Active Substance: ASPIRIN

REACTIONS (3)
  - Lower gastrointestinal haemorrhage [None]
  - Rectal haemorrhage [None]
  - Haematochezia [None]

NARRATIVE: CASE EVENT DATE: 20200906
